FAERS Safety Report 6544859-0 (Version None)
Quarter: 2010Q1

REPORT INFORMATION
  Report Type: 
  Country: None (occurrence: None)
  Receive Date: 20100121
  Receipt Date: 20100115
  Transmission Date: 20100710
  Serious: Yes (Other)
  Sender: FDA-Public Use
  Company Number: BR-PFIZER INC-2010005913

PATIENT
  Age: 30 Year
  Sex: Female
  Weight: 65 kg

DRUGS (1)
  1. DEPO-PROVERA [Suspect]
     Indication: CONTRACEPTION
     Dosage: 150 MG, UNK
     Route: 030
     Dates: start: 20060101, end: 20090915

REACTIONS (6)
  - AMENORRHOEA [None]
  - BREAST SWELLING [None]
  - CYST [None]
  - GALACTORRHOEA [None]
  - LEIOMYOMA [None]
  - PELVIC PAIN [None]
